FAERS Safety Report 4735956-0 (Version None)
Quarter: 2005Q3

REPORT INFORMATION
  Report Type: 
  Country: None (occurrence: None)
  Receive Date: 20050805
  Receipt Date: 20040908
  Transmission Date: 20060218
  Serious: Yes (Life-Threatening, Hospitalization, Other)
  Sender: FDA-Public Use
  Company Number: FR-ABBOTT-04P-056-0272952-00

PATIENT
  Age: 78 Year
  Sex: Female

DRUGS (13)
  1. VERAPAMIL [Suspect]
     Indication: DRUG USE FOR UNKNOWN INDICATION
     Route: 048
     Dates: end: 20040806
  2. RITONAVIR SOFT GELATIN CAPSULES [Interacting]
     Indication: HIV INFECTION
     Route: 048
     Dates: start: 20040428, end: 20040806
  3. ATAZANAVIR [Interacting]
     Indication: HIV INFECTION
     Route: 048
     Dates: start: 20040428, end: 20040806
  4. GABAPENTIN [Concomitant]
     Indication: DRUG USE FOR UNKNOWN INDICATION
  5. BROMAZEPAM [Concomitant]
     Indication: DRUG USE FOR UNKNOWN INDICATION
  6. RILMENIDINE [Concomitant]
     Indication: DRUG USE FOR UNKNOWN INDICATION
     Dates: start: 20040716
  7. CALCIUM OF FOLINATE [Concomitant]
     Indication: DRUG USE FOR UNKNOWN INDICATION
  8. ERYTHROMYCIN [Concomitant]
     Indication: DRUG USE FOR UNKNOWN INDICATION
  9. OMEPRAZOLE [Concomitant]
     Indication: DRUG USE FOR UNKNOWN INDICATION
  10. RISEDRONATE SODIUM [Concomitant]
     Indication: DRUG USE FOR UNKNOWN INDICATION
  11. BACTRIM [Concomitant]
     Indication: DRUG USE FOR UNKNOWN INDICATION
  12. CAPCIT VIT D3 [Concomitant]
     Indication: DRUG USE FOR UNKNOWN INDICATION
  13. FENOFIBRATE [Concomitant]
     Indication: DRUG USE FOR UNKNOWN INDICATION

REACTIONS (10)
  - ATRIOVENTRICULAR BLOCK [None]
  - BRADYCARDIA [None]
  - BUNDLE BRANCH BLOCK LEFT [None]
  - CARDIOGENIC SHOCK [None]
  - COMA [None]
  - DRUG INTERACTION [None]
  - ELECTROCARDIOGRAM QT PROLONGED [None]
  - HYPERTENSION [None]
  - HYPERTROPHIC CARDIOMYOPATHY [None]
  - VENTRICULAR ARRHYTHMIA [None]
